FAERS Safety Report 6817821-8 (Version None)
Quarter: 2010Q3

REPORT INFORMATION
  Report Type: 
  Country: None (occurrence: None)
  Receive Date: 20100706
  Receipt Date: 20100701
  Transmission Date: 20110219
  Serious: Yes (Hospitalization, Other)
  Sender: FDA-Public Use
  Company Number: US-MERCK-1006USA01525

PATIENT
  Age: 65 Year
  Sex: Female

DRUGS (3)
  1. JANUVIA [Suspect]
     Indication: TYPE 2 DIABETES MELLITUS
     Route: 048
  2. JANUVIA [Suspect]
     Route: 048
  3. METFORMIN [Concomitant]
     Route: 065

REACTIONS (3)
  - DIARRHOEA [None]
  - GASTROINTESTINAL HAEMORRHAGE [None]
  - INAPPROPRIATE SCHEDULE OF DRUG ADMINISTRATION [None]
